FAERS Safety Report 17819331 (Version 3)
Quarter: 2020Q3

REPORT INFORMATION
  Report Type: Report from Study
  Country: US (occurrence: US)
  Receive Date: 20200523
  Receipt Date: 20200813
  Transmission Date: 20201102
  Serious: Yes (Hospitalization, Other)
  Sender: FDA-Public Use
  Company Number: NVSC2020US137070

PATIENT
  Sex: Female

DRUGS (1)
  1. GILENYA [Suspect]
     Active Substance: FINGOLIMOD HYDROCHLORIDE
     Indication: RELAPSING MULTIPLE SCLEROSIS
     Dosage: 0.5 MG
     Route: 048
     Dates: start: 20200629

REACTIONS (5)
  - Headache [Not Recovered/Not Resolved]
  - Pain in extremity [Unknown]
  - Back pain [Not Recovered/Not Resolved]
  - Multiple sclerosis relapse [Unknown]
  - Limb discomfort [Recovering/Resolving]
